FAERS Safety Report 23798735 (Version 1)
Quarter: 2024Q2

REPORT INFORMATION
  Report Type: Spontaneous
  Country: US (occurrence: None)
  Receive Date: 20240427
  Receipt Date: 20240427
  Transmission Date: 20240716
  Serious: No
  Sender: FDA-Public Use
  Company Number: None

PATIENT
  Age: 73 Year
  Sex: Male
  Weight: 74.25 kg

DRUGS (8)
  1. FAMOTIDINE [Suspect]
     Active Substance: FAMOTIDINE
     Indication: Gastrooesophageal reflux disease
     Dosage: OTHER QUANTITY : 1 TABLET(S);?FREQUENCY : TWICE A DAY;?
     Route: 048
  2. ZANUBRUTINIB [Concomitant]
     Active Substance: ZANUBRUTINIB
  3. LEVOTHYROXINE [Concomitant]
     Active Substance: LEVOTHYROXINE\LEVOTHYROXINE SODIUM
  4. TAMSULOSIN [Concomitant]
     Active Substance: TAMSULOSIN
  5. NAPROXEN [Concomitant]
     Active Substance: NAPROXEN
  6. OMEPRAZOLE [Concomitant]
     Active Substance: DONEPEZIL HYDROCHLORIDE\OMEPRAZOLE\OMEPRAZOLE MAGNESIUM
  7. CALCIUM [Concomitant]
     Active Substance: CALCIUM
  8. VITAMINS [Concomitant]
     Active Substance: VITAMINS

REACTIONS (2)
  - Vertigo [None]
  - Nausea [None]

NARRATIVE: CASE EVENT DATE: 20240427
